FAERS Safety Report 5424781-3 (Version None)
Quarter: 2007Q3

REPORT INFORMATION
  Report Type: 
  Country: None (occurrence: None)
  Receive Date: 20070725
  Receipt Date: 20061228
  Transmission Date: 20080115
  Serious: No
  Sender: FDA-Public Use
  Company Number: USA-2006-0026049

PATIENT
  Age: 40 Year
  Sex: Female

DRUGS (1)
  1. MORPHINE SULFATE [Suspect]
     Indication: DRUG ABUSER

REACTIONS (1)
  - OVERDOSE [None]
